FAERS Safety Report 7361893-1 (Version None)
Quarter: 2011Q1

REPORT INFORMATION
  Report Type: 
  Country: None (occurrence: None)
  Receive Date: 20110318
  Receipt Date: 20110311
  Transmission Date: 20110831
  Serious: Yes (Other)
  Sender: FDA-Public Use
  Company Number: PL-PFIZER INC-2011053927

PATIENT
  Age: 24 Year
  Sex: Female

DRUGS (1)
  1. PROVERA [Suspect]
     Indication: AMENORRHOEA
     Dosage: 5 MG, UNK
     Dates: start: 20110222, end: 20110224

REACTIONS (1)
  - ABORTION SPONTANEOUS [None]
